FAERS Safety Report 14304305 (Version 1)
Quarter: 2017Q4

REPORT INFORMATION
  Report Type: Spontaneous
  Country: US (occurrence: US)
  Receive Date: 20171219
  Receipt Date: 20171219
  Transmission Date: 20180321
  Serious: Yes (Other)
  Sender: FDA-Public Use
  Company Number: US-OTSUKA-DJ201401235

PATIENT
  Sex: Male

DRUGS (1)
  1. ABILIFY [Suspect]
     Active Substance: ARIPIPRAZOLE
     Indication: BIPOLAR DISORDER
     Dosage: 10 MG, QD
     Route: 065

REACTIONS (7)
  - Blood glucose increased [Unknown]
  - Glaucoma [Unknown]
  - Oesophagitis [Unknown]
  - Sleep apnoea syndrome [Unknown]
  - Palpitations [Recovered/Resolved]
  - Pruritus [Unknown]
  - Weight increased [Unknown]
